FAERS Safety Report 7623449-2 (Version None)
Quarter: 2011Q3

REPORT INFORMATION
  Report Type: 
  Country: None (occurrence: None)
  Receive Date: 20110720
  Receipt Date: 20110711
  Transmission Date: 20111222
  Serious: Yes (Other)
  Sender: FDA-Public Use
  Company Number: PHHY2011US61809

PATIENT
  Age: 49 Year
  Sex: Male

DRUGS (6)
  1. NIACIN [Concomitant]
  2. GEMFIBROZIL [Concomitant]
  3. ASPIRIN [Concomitant]
  4. INSULIN [Concomitant]
  5. METFORMIN HCL [Concomitant]
  6. LOSARTAN [Suspect]
     Indication: HYPERTENSION

REACTIONS (5)
  - PRURITUS [None]
  - RASH PAPULAR [None]
  - PAPULE [None]
  - PSORIASIS [None]
  - ERYTHEMA [None]
